FAERS Safety Report 8850921 (Version 1)
Quarter: 2012Q4

REPORT INFORMATION
  Report Type: 
  Country: US (occurrence: US)
  Receive Date: 20121019
  Receipt Date: 20121019
  Transmission Date: 20130627
  Serious: Yes (Hospitalization, Other)
  Sender: FDA-Public Use
  Company Number: US-PFIZER INC-2012258790

PATIENT
  Age: 47 Year
  Sex: Female
  Weight: 63.49 kg

DRUGS (2)
  1. CHANTIX [Suspect]
     Indication: SMOKING CESSATION THERAPY
     Dosage: 1 mg, Daily
     Dates: start: 201209
  2. CHANTIX [Suspect]
     Dosage: 1 mg, UNK
     Dates: start: 2012, end: 2012

REACTIONS (3)
  - Depression [Unknown]
  - Hallucination [Recovered/Resolved]
  - Thyroid disorder [Unknown]
